FAERS Safety Report 23224164 (Version 1)
Quarter: 2023Q4

REPORT INFORMATION
  Report Type: Report from Study
  Country: US (occurrence: US)
  Receive Date: 20231124
  Receipt Date: 20231124
  Transmission Date: 20240109
  Serious: Yes (Other)
  Sender: FDA-Public Use
  Company Number: US-UCBSA-2023055510

PATIENT
  Age: 41 Year
  Sex: Female

DRUGS (2)
  1. KEPPRA [Interacting]
     Active Substance: LEVETIRACETAM
     Indication: Seizure
     Dosage: UNK
  2. ZONISAMIDE [Interacting]
     Active Substance: ZONISAMIDE
     Indication: Seizure
     Dosage: UNK

REACTIONS (3)
  - Seizure [Unknown]
  - Drug interaction [Unknown]
  - Drug ineffective [Unknown]
